FAERS Safety Report 4589803-0 (Version None)
Quarter: 2005Q1

REPORT INFORMATION
  Report Type: 
  Country: None (occurrence: None)
  Receive Date: 20050223
  Receipt Date: 20050210
  Transmission Date: 20050727
  Serious: Yes (Death, Hospitalization)
  Sender: FDA-Public Use
  Company Number: FR-GLAXOSMITHKLINE-B0371343A

PATIENT
  Age: 28 Year
  Sex: Female

DRUGS (6)
  1. COMBIVIR [Suspect]
     Indication: HIV INFECTION
     Dosage: 2UNIT PER DAY
     Route: 048
     Dates: start: 20000501, end: 20041130
  2. MYAMBUTOL [Suspect]
     Indication: LYMPH NODE TUBERCULOSIS
     Route: 048
     Dates: start: 20041108
  3. RIFADIN [Suspect]
     Indication: LYMPH NODE TUBERCULOSIS
     Route: 048
     Dates: start: 20041108
  4. RIMIFON [Suspect]
     Indication: LYMPH NODE TUBERCULOSIS
     Route: 048
     Dates: start: 20041108
  5. SUSTIVA [Suspect]
     Indication: HIV INFECTION
     Dosage: 3UNIT PER DAY
     Route: 048
     Dates: start: 20000501, end: 20041130
  6. BACTRIM DS [Concomitant]
     Route: 065
     Dates: start: 20020201

REACTIONS (6)
  - ASTHENIA [None]
  - CONDITION AGGRAVATED [None]
  - LACTIC ACIDOSIS [None]
  - LYMPH NODE TUBERCULOSIS [None]
  - SUDDEN DEATH [None]
  - TREATMENT NONCOMPLIANCE [None]
